FAERS Safety Report 23493414 (Version 2)
Quarter: 2024Q4

REPORT INFORMATION
  Report Type: Spontaneous
  Country: US (occurrence: US)
  Receive Date: 20240207
  Receipt Date: 20241025
  Transmission Date: 20250115
  Serious: Yes (Hospitalization, Other)
  Sender: PHARMING GROUP
  Company Number: US-PHARMING-PHAUS2024000091

PATIENT

DRUGS (2)
  1. RUCONEST [Suspect]
     Active Substance: CONESTAT ALFA
     Indication: Hereditary angioedema
     Dosage: 4200 IU, BEFORE EVERY IVIG INFUSION AT DAY TWO OF THE CYCLE EVERY THREE WEEKS
     Route: 042
     Dates: start: 202011
  2. RUCONEST [Suspect]
     Active Substance: CONESTAT ALFA
     Indication: Hereditary angioedema
     Dosage: UNK
     Route: 042
     Dates: start: 2021

REACTIONS (5)
  - Intracranial pressure increased [Unknown]
  - Product dose omission issue [Unknown]
  - Insurance issue [Unknown]
  - Product use in unapproved indication [Unknown]
  - Intentional product use issue [Recovered/Resolved]

NARRATIVE: CASE EVENT DATE: 20240110
